FAERS Safety Report 23880707 (Version 1)
Quarter: 2024Q2

REPORT INFORMATION
  Report Type: Spontaneous
  Country: FR (occurrence: FR)
  Receive Date: 20240521
  Receipt Date: 20240521
  Transmission Date: 20240716
  Serious: Yes (Hospitalization, Other)
  Sender: FDA-Public Use
  Company Number: FR-CHEPLA-2024006015

PATIENT
  Sex: Female

DRUGS (11)
  1. PREDNISONE [Suspect]
     Active Substance: PREDNISONE
     Indication: Leprosy
     Dosage: UNK
     Dates: start: 20110909, end: 20111110
  2. CALCIUM CARBONATE\CHOLECALCIFEROL [Suspect]
     Active Substance: CALCIUM CARBONATE\CHOLECALCIFEROL
     Indication: Product used for unknown indication
     Dosage: UNK
     Dates: start: 20110909, end: 20120106
  3. HYDROCORTISONE [Suspect]
     Active Substance: HYDROCORTISONE
     Indication: Leprosy
     Dosage: 20 MG, QD
     Dates: start: 20111111, end: 20120427
  4. LAMPRENE [Suspect]
     Active Substance: CLOFAZIMINE
     Indication: Leprosy
     Dosage: 50 MG, QD
     Dates: start: 20110909, end: 20120427
  5. DAPSONE\FERROUS OXALATE [Suspect]
     Active Substance: DAPSONE\FERROUS OXALATE
     Indication: Leprosy
     Dosage: 100 MG, QD
     Dates: start: 20110909, end: 20120427
  6. ACTONEL [Suspect]
     Active Substance: RISEDRONATE SODIUM
     Indication: Product used for unknown indication
     Dosage: 35 MG, QD
     Dates: start: 20110909, end: 20111118
  7. AMITRIPTYLINE HYDROCHLORIDE [Suspect]
     Active Substance: AMITRIPTYLINE HYDROCHLORIDE
     Indication: Leprosy
     Dosage: 50 DROP, QD
     Dates: start: 20110909, end: 201112
  8. RIFAMPIN [Suspect]
     Active Substance: RIFAMPIN
     Indication: Leprosy
     Dosage: 600 MG, QD
     Dates: start: 20110909, end: 20120427
  9. PREGABALIN [Suspect]
     Active Substance: PREGABALIN
     Indication: Leprosy
     Dosage: 150 MG, QD
     Dates: start: 20110909, end: 201212
  10. PLAQUENIL [Suspect]
     Active Substance: HYDROXYCHLOROQUINE SULFATE
     Indication: Leprosy
     Dosage: 200 MG, QD
     Dates: start: 20110909, end: 20120106
  11. ESOMEPRAZOLE SODIUM [Suspect]
     Active Substance: ESOMEPRAZOLE SODIUM
     Indication: Product used for unknown indication
     Dosage: 20 MG, QD
     Dates: start: 20110909, end: 201112

REACTIONS (3)
  - Preterm premature rupture of membranes [Recovered/Resolved]
  - Maternal exposure during pregnancy [Recovered/Resolved]
  - Off label use [Recovered/Resolved]

NARRATIVE: CASE EVENT DATE: 20120215
